FAERS Safety Report 7247876-0 (Version None)
Quarter: 2011Q1

REPORT INFORMATION
  Report Type: 
  Country: None (occurrence: None)
  Receive Date: 20110127
  Receipt Date: 20110126
  Transmission Date: 20110831
  Serious: Yes (Life-Threatening, Hospitalization)
  Sender: FDA-Public Use
  Company Number: CH-PFIZER INC-2010098336

PATIENT
  Age: 67 Year
  Sex: Male

DRUGS (31)
  1. DIFLUCAN [Suspect]
     Indication: CANDIDIASIS
     Dosage: 400 MG, 1X/DAY
     Route: 042
     Dates: start: 20100715
  2. CORDARONE [Interacting]
     Indication: ATRIAL FIBRILLATION
     Dosage: 1000 MG/DAILY
     Route: 042
     Dates: start: 20100708, end: 20100708
  3. SEROQUEL [Concomitant]
  4. TAZOBAC [Concomitant]
  5. BISOPROLOL FUMARATE [Concomitant]
  6. SORTIS [Interacting]
     Indication: HYPERLIPIDAEMIA
     Dosage: 40 MG, 1X/DAY
     Route: 048
     Dates: start: 20100101, end: 20100716
  7. CORDARONE [Interacting]
     Indication: ATRIAL FLUTTER
     Dosage: 750 MG/DAILY
     Route: 042
     Dates: start: 20100709, end: 20100711
  8. CORDARONE [Interacting]
     Dosage: 150 MG/DAILY
     Route: 042
     Dates: start: 20100718, end: 20100718
  9. NORADRENALINE [Concomitant]
  10. METOLAZONE [Concomitant]
  11. DOBUTREX [Concomitant]
  12. ACTRAPID [Concomitant]
  13. CORDARONE [Interacting]
     Dosage: 375 MG/DAILY
     Route: 042
     Dates: start: 20100712, end: 20100717
  14. HALDOL [Concomitant]
  15. HYPNOMIDATE [Concomitant]
  16. RECORMON PS [Concomitant]
  17. PROPOFOL [Concomitant]
  18. CORVERT [Concomitant]
     Indication: ATRIAL FIBRILLATION
  19. DIFLUCAN [Interacting]
     Dosage: 200 MG, 1X/DAY
     Route: 042
     Dates: end: 20100718
  20. ESMERON [Concomitant]
  21. SOLDACTONE [Concomitant]
  22. PERLINGANIT [Concomitant]
  23. MINERALS NOS [Concomitant]
  24. FENTANYL [Concomitant]
  25. MEPHANOL [Concomitant]
  26. LASIX [Concomitant]
  27. ASPIRIN [Concomitant]
  28. KONAKION [Concomitant]
  29. LIQUAEMIN INJ [Concomitant]
  30. TARDYFERON [Concomitant]
  31. LISINOPRIL AND HYDROCHLOROTHIAZIDE [Concomitant]

REACTIONS (7)
  - BLOOD CREATINE PHOSPHOKINASE INCREASED [None]
  - RHABDOMYOLYSIS [None]
  - MYOGLOBINAEMIA [None]
  - RENAL FAILURE CHRONIC [None]
  - HYPOCALCAEMIA [None]
  - DRUG INTERACTION [None]
  - HYPERPHOSPHATAEMIA [None]
